FAERS Safety Report 9699168 (Version 1)
Quarter: 2013Q4

REPORT INFORMATION
  Report Type: Spontaneous
  Country: US (occurrence: US)
  Receive Date: 20131120
  Receipt Date: 20131120
  Transmission Date: 20140711
  Serious: No
  Sender: FDA-Public Use
  Company Number: US-GILEAD-2008-0015035

PATIENT
  Sex: Female
  Weight: 53.52 kg

DRUGS (12)
  1. LETAIRIS [Suspect]
     Indication: PULMONARY ARTERIAL HYPERTENSION
     Route: 048
  2. ZYRTEC [Concomitant]
     Route: 048
  3. CITALOPRAM [Concomitant]
     Route: 048
  4. FISH OIL [Concomitant]
     Route: 048
  5. ASPIRIN [Concomitant]
     Route: 048
  6. DILTIAZEM [Concomitant]
     Route: 048
  7. MULTIVITAMIN [Concomitant]
     Route: 048
  8. VIVELLE DOT [Concomitant]
     Dosage: UD
     Route: 061
  9. LORAZEPAM [Concomitant]
     Route: 048
  10. PREVACID [Concomitant]
     Route: 048
  11. AMITRIPTYLINE [Concomitant]
     Route: 048
  12. POTASSIUM CHLORIDE [Concomitant]
     Route: 048

REACTIONS (2)
  - Cataract [None]
  - Sinus disorder [None]
